FAERS Safety Report 9752281 (Version 1)
Quarter: 2013Q4

REPORT INFORMATION
  Report Type: Spontaneous
  Country: US (occurrence: None)
  Receive Date: 20131211
  Receipt Date: 20131211
  Transmission Date: 20140711
  Serious: No
  Sender: FDA-Public Use
  Company Number: None

PATIENT
  Age: 64 Year
  Sex: Female

DRUGS (1)
  1. AFINITOR 10MG NOVARTIS [Suspect]
     Route: 048
     Dates: start: 20131115, end: 20131201

REACTIONS (4)
  - Feeling abnormal [None]
  - Aphasia [None]
  - Aphagia [None]
  - Movement disorder [None]
